FAERS Safety Report 21750663 (Version 1)
Quarter: 2022Q4

REPORT INFORMATION
  Report Type: Report from Study
  Country: GB (occurrence: GB)
  Receive Date: 20221219
  Receipt Date: 20221219
  Transmission Date: 20230113
  Serious: Yes (Death, Hospitalization, Other)
  Sender: FDA-Public Use
  Company Number: GB-ROCHE-1836249

PATIENT
  Age: 33 Year
  Sex: Female

DRUGS (177)
  1. ANASTROZOLE [Suspect]
     Active Substance: ANASTROZOLE
     Indication: HER2 positive breast cancer
     Dosage: 1 MILLIGRAM DAILY; 1 MG, QD, DURATION : 456 DAYS
     Route: 048
     Dates: start: 20180606, end: 20190904
  2. ANASTROZOLE [Suspect]
     Active Substance: ANASTROZOLE
     Dosage: 1 MILLIGRAM DAILY; 1 MG, QD, THERAPY END DATE : NOT ASKED
     Route: 048
     Dates: start: 20180606
  3. TAMOXIFEN [Suspect]
     Active Substance: TAMOXIFEN
     Indication: HER2 positive breast cancer
     Dosage: DAILY, DURATION : 113 DAYS
     Route: 048
     Dates: start: 20180213, end: 20180605
  4. TAMOXIFEN [Suspect]
     Active Substance: TAMOXIFEN
     Indication: HER2 positive breast cancer
     Dosage: DAILY, DURATION : 189 DAYS
     Route: 048
     Dates: start: 20170623, end: 20171228
  5. TAMOXIFEN [Suspect]
     Active Substance: TAMOXIFEN
     Dosage: DURATION : 189 DAYS, UNK, UNIT DOSE: 20 MG, TAMOXIFEN CITRATE
     Route: 065
     Dates: start: 20170623, end: 20171228
  6. TAMOXIFEN [Suspect]
     Active Substance: TAMOXIFEN
     Dosage: 20 MILLIGRAM DAILY; TAMOXIFEN CITRATE, 20 MG, QD, DURATION : 113 DAYS
     Route: 065
     Dates: start: 20180213, end: 20180605
  7. DOCETAXEL [Suspect]
     Active Substance: DOCETAXEL
     Indication: HER2 positive breast cancer
     Dosage: 110 MG, ONCE EVERY 3 WK, DURATION : 45 DAYS
     Route: 042
     Dates: start: 20160907, end: 20161021
  8. DOCETAXEL [Suspect]
     Active Substance: DOCETAXEL
     Dosage: 130 MG, ONCE EVERY 3 WK, DURATION :27 DAYS
     Route: 042
     Dates: start: 20160701, end: 20160727
  9. DOCETAXEL [Suspect]
     Active Substance: DOCETAXEL
     Dosage: 1000 MILLIGRAM DAILY; 500 MG, BID, THERAPY END DATE : NASK
     Route: 042
     Dates: start: 20170617
  10. DOCETAXEL [Suspect]
     Active Substance: DOCETAXEL
     Dosage: 110 MG, ONCE EVERY 3 WK, DURATION : 2 DAYS
     Route: 042
     Dates: start: 20160202, end: 20160203
  11. DOCETAXEL [Suspect]
     Active Substance: DOCETAXEL
     Dosage: 130 MG, ONCE EVERY 3 WK, THERAPY END DATE : NASK
     Route: 042
     Dates: start: 20160727
  12. DOCETAXEL [Suspect]
     Active Substance: DOCETAXEL
     Dosage: 1 NG, THERAPY END DATE : NASK
     Route: 042
     Dates: start: 20170616
  13. DOCETAXEL [Suspect]
     Active Substance: DOCETAXEL
     Dosage: 108 MG, ONCE EVERY 3 WK, DURATION : 1 DAYS
     Route: 042
     Dates: start: 20161111, end: 20161111
  14. BENZYDAMINE HYDROCHLORIDE [Suspect]
     Active Substance: BENZYDAMINE HYDROCHLORIDE
     Indication: Product used for unknown indication
     Dosage: UNK, DURATION : 2 DAYS
     Route: 065
     Dates: start: 20160722, end: 20160723
  15. BENZYDAMINE HYDROCHLORIDE [Suspect]
     Active Substance: BENZYDAMINE HYDROCHLORIDE
     Dosage: 130 MG, UNIT DOSE : 130 MG, THERAPY END DATE : NASK
     Route: 065
     Dates: start: 20170727
  16. ENHERTU [Suspect]
     Active Substance: FAM-TRASTUZUMAB DERUXTECAN-NXKI
     Indication: Off label use
     Dosage: 567 MILLIGRAM DAILY; 567 MG, QD, DURATION : 1 DAYS
     Route: 042
     Dates: start: 20160609, end: 20160609
  17. ENHERTU [Suspect]
     Active Substance: FAM-TRASTUZUMAB DERUXTECAN-NXKI
     Indication: HER2 positive breast cancer
     Dosage: EVERY THREE WEEKS, DURATION : 22 DAYS
     Route: 042
     Dates: start: 20161021, end: 20161111
  18. ENHERTU [Suspect]
     Active Substance: FAM-TRASTUZUMAB DERUXTECAN-NXKI
     Dosage: 452 MG, ONCE EVERY 3 WK, DURATION : 22 DAYS
     Route: 042
     Dates: start: 20170428, end: 20170519
  19. ENHERTU [Suspect]
     Active Substance: FAM-TRASTUZUMAB DERUXTECAN-NXKI
     Dosage: 473 MG, ONCE EVERY 3 WK, THERAPY END DATE : NASK
     Route: 042
     Dates: start: 20170612
  20. ENHERTU [Suspect]
     Active Substance: FAM-TRASTUZUMAB DERUXTECAN-NXKI
     Dosage: 452 MG, ONCE EVERY 3 WK, THERAPY END DATE : NASK
     Route: 042
     Dates: start: 20180831
  21. ENHERTU [Suspect]
     Active Substance: FAM-TRASTUZUMAB DERUXTECAN-NXKI
     Dosage: 452 MG, ONCE EVERY 3 WK, DURATION : 160 DAYS
     Route: 042
     Dates: start: 20161111, end: 20170419
  22. ENHERTU [Suspect]
     Active Substance: FAM-TRASTUZUMAB DERUXTECAN-NXKI
     Dosage: 420 MG, ONCE EVERY 3 WK, DURATION : 247 DAYS
     Route: 042
     Dates: start: 20160602, end: 20170203
  23. ENHERTU [Suspect]
     Active Substance: FAM-TRASTUZUMAB DERUXTECAN-NXKI
     Dosage: 420 MG, ONCE EVERY 3 WK, DURATION : 64 DAYS
     Route: 042
     Dates: start: 20161202, end: 20170203
  24. ENHERTU [Suspect]
     Active Substance: FAM-TRASTUZUMAB DERUXTECAN-NXKI
     Dosage: 567 MILLIGRAM DAILY; 567 MG, QD, DURATION : 200 DAYS
     Route: 042
     Dates: start: 20170612, end: 20171228
  25. ENHERTU [Suspect]
     Active Substance: FAM-TRASTUZUMAB DERUXTECAN-NXKI
     Dosage: 452 MG, ONCE EVERY 3 WK, DURATION : 64 DAYS
     Route: 042
     Dates: start: 20161202, end: 20170203
  26. ENHERTU [Suspect]
     Active Substance: FAM-TRASTUZUMAB DERUXTECAN-NXKI
     Dosage: 473 MG, ONCE EVERY 3 WK, DURATION : 22 DAYS
     Route: 042
     Dates: start: 20170428, end: 20170519
  27. ENHERTU [Suspect]
     Active Substance: FAM-TRASTUZUMAB DERUXTECAN-NXKI
     Dosage: 452 MG, ONCE EVERY 3 WK, DURATION : 190 DAYS
     Route: 042
     Dates: start: 20161111, end: 20170519
  28. ENHERTU [Suspect]
     Active Substance: FAM-TRASTUZUMAB DERUXTECAN-NXKI
     Dosage: 452 MG, ONCE EVERY 3 WK, DURATION : 190 DAYS
     Route: 042
     Dates: start: 20161111, end: 20170519
  29. ENHERTU [Suspect]
     Active Substance: FAM-TRASTUZUMAB DERUXTECAN-NXKI
     Dosage: 420 MG, ONCE EVERY 3 WK, DURATION : 27 DAYS
     Route: 042
     Dates: start: 20160701, end: 20160727
  30. ENHERTU [Suspect]
     Active Substance: FAM-TRASTUZUMAB DERUXTECAN-NXKI
     Dosage: 420 MG, ONCE EVERY 3 WK, DURATION : 43 DAYS
     Route: 042
     Dates: start: 20170224, end: 20170407
  31. ENHERTU [Suspect]
     Active Substance: FAM-TRASTUZUMAB DERUXTECAN-NXKI
     Dosage: 473 MG, ONCE EVERY 3 WK, DURATION : 224 DAYS
     Route: 042
     Dates: start: 20170519, end: 20171228
  32. ENHERTU [Suspect]
     Active Substance: FAM-TRASTUZUMAB DERUXTECAN-NXKI
     Dosage: 420 MG, ONCE EVERY 3 WK
     Route: 042
  33. ENHERTU [Suspect]
     Active Substance: FAM-TRASTUZUMAB DERUXTECAN-NXKI
     Dosage: 441 MG, ONCE EVERY 3 WK, DURATION : 20 DAYS
     Route: 042
     Dates: start: 20160907, end: 20160926
  34. ENHERTU [Suspect]
     Active Substance: FAM-TRASTUZUMAB DERUXTECAN-NXKI
     Dosage: 452 MG, ONCE EVERY 3 WK, THERAPY END DATE : NASK
     Route: 042
     Dates: start: 20180131
  35. PERTUZUMAB [Suspect]
     Active Substance: PERTUZUMAB
     Indication: HER2 positive breast cancer
     Dosage: 840 MG, ONCE EVERY 3 WK, DURATION : 1 DAYS
     Route: 042
     Dates: start: 20160609, end: 20160609
  36. PERTUZUMAB [Suspect]
     Active Substance: PERTUZUMAB
     Dosage: 420 MG, ONCE EVERY 3 WK, DURATION : 546 DAYS
     Route: 042
     Dates: start: 20160701, end: 20171228
  37. TRASTUZUMAB [Suspect]
     Active Substance: TRASTUZUMAB
     Indication: HER2 positive breast cancer
     Dosage: 1355 MG, ONCE EVERY 3 WK, DURATION : 190 DAYS
     Route: 042
     Dates: start: 20161111, end: 20170519
  38. TRASTUZUMAB [Suspect]
     Active Substance: TRASTUZUMAB
     Dosage: 473 MG, ONCE EVERY 3 WK, DURATION : 224 DAYS
     Route: 042
     Dates: start: 20170519, end: 20171228
  39. TRASTUZUMAB [Suspect]
     Active Substance: TRASTUZUMAB
     Dosage: 1260 MG, ONCE EVERY 3 WK, THERAPY END DATE : NASK
     Route: 042
     Dates: start: 20170224
  40. TRASTUZUMAB [Suspect]
     Active Substance: TRASTUZUMAB
     Dosage: 441 MG, ONCE EVERY 3 WK, DURATION : 20 DAYS
     Route: 042
     Dates: start: 20160907, end: 20160926
  41. TRASTUZUMAB [Suspect]
     Active Substance: TRASTUZUMAB
     Dosage: 420 MG, ONCE EVERY 3 WK, THERAPY END DATE : NASK
     Route: 042
     Dates: start: 20160701
  42. TRASTUZUMAB [Suspect]
     Active Substance: TRASTUZUMAB
     Dosage: 1323 MG, ONCE EVERY 3 WK, DURATION : 20 DAYS
     Route: 042
     Dates: start: 20160907, end: 20160926
  43. TRASTUZUMAB [Suspect]
     Active Substance: TRASTUZUMAB
     Dosage: 452 MG, ONCE EVERY 3 WK, DURATION : 22 DAYS
     Route: 042
     Dates: start: 20161021, end: 20161111
  44. TRASTUZUMAB [Suspect]
     Active Substance: TRASTUZUMAB
     Dosage: 420 MG, ONCE EVERY 3 WK, DURATION : 20 DAYS
     Route: 042
     Dates: start: 20160907, end: 20160926
  45. TRASTUZUMAB [Suspect]
     Active Substance: TRASTUZUMAB
     Dosage: 420 MG, ONCE EVERY 3 WK, DURATION : 64 DAYS
     Route: 042
     Dates: start: 20161202, end: 20170203
  46. TRASTUZUMAB [Suspect]
     Active Substance: TRASTUZUMAB
     Dosage: 280 MG, ONCE EVERY 3 WK, DURATION : 1 DAYS
     Route: 042
     Dates: start: 20180131, end: 20180131
  47. TRASTUZUMAB [Suspect]
     Active Substance: TRASTUZUMAB
     Dosage: 473 MG, ONCE EVERY 3 WK, DURATION : 224 DAYS
     Route: 042
     Dates: start: 20170519, end: 20171228
  48. TRASTUZUMAB [Suspect]
     Active Substance: TRASTUZUMAB
     Dosage: 420 MG, ONCE EVERY 3 WK, DURATION : 43 DAYS
     Route: 042
     Dates: start: 20170224, end: 20170407
  49. TRASTUZUMAB [Suspect]
     Active Substance: TRASTUZUMAB
     Dosage: 1418 MG, ONCE EVERY 3 WK, DURATION : 200 DAYS
     Route: 042
     Dates: start: 20170612, end: 20171228
  50. TRASTUZUMAB [Suspect]
     Active Substance: TRASTUZUMAB
     Dosage: 452 MG, ONCE EVERY 3 WK, DURATION : 190 DAYS
     Route: 042
     Dates: start: 20161111, end: 20170519
  51. TRASTUZUMAB [Suspect]
     Active Substance: TRASTUZUMAB
     Dosage: 567 MILLIGRAM DAILY; 567 MG, QD, DURATION : 1 DAYS
     Route: 042
     Dates: start: 20160609, end: 20160609
  52. TRASTUZUMAB [Suspect]
     Active Substance: TRASTUZUMAB
     Dosage: 73 MG, ONCE EVERY 3 WK, THERAPY END DATE : NASK
     Route: 042
     Dates: start: 20170612
  53. TRASTUZUMAB [Suspect]
     Active Substance: TRASTUZUMAB
     Dosage: 430 MG, ONCE EVERY 3 WK, DURATION : 43 DAYS
     Route: 042
     Dates: start: 20170224, end: 20170407
  54. TRASTUZUMAB [Suspect]
     Active Substance: TRASTUZUMAB
     Dosage: 441 MG, ONCE EVERY 3 WK, DURATION : 64 DAYS
     Route: 042
     Dates: start: 20161202, end: 20170203
  55. TRASTUZUMAB [Suspect]
     Active Substance: TRASTUZUMAB
     Dosage: 431 MG, ONCE EVERY 3 WK, DURATION : 43 DAYS
     Route: 042
     Dates: start: 20170224, end: 20170407
  56. TRASTUZUMAB [Suspect]
     Active Substance: TRASTUZUMAB
     Dosage: 473 MG, ONCE EVERY 3 WK, DURATION : 200 DAYS
     Route: 042
     Dates: start: 20170612, end: 20171228
  57. TRASTUZUMAB [Suspect]
     Active Substance: TRASTUZUMAB
     Dosage: 1292 MG, ONCE EVERY 3 WK, DURATION : 43 DAYS
     Route: 042
     Dates: start: 20170224, end: 20170407
  58. TRASTUZUMAB [Suspect]
     Active Substance: TRASTUZUMAB
     Dosage: 452 MG, ONCE EVERY 3 WK, DURATION :64 DAYS
     Route: 042
     Dates: start: 20161202, end: 20170203
  59. TRASTUZUMAB [Suspect]
     Active Substance: TRASTUZUMAB
     Dosage: 452 MG, ONCE EVERY 3 WK, DURATION : 22 DAYS
     Route: 042
     Dates: start: 20170428, end: 20170519
  60. TRASTUZUMAB [Suspect]
     Active Substance: TRASTUZUMAB
     Dosage: 567 MG, ONCE EVERY 3 WK, DURATION : 1 DAYS
     Route: 042
     Dates: start: 20160609, end: 20160609
  61. TRASTUZUMAB [Suspect]
     Active Substance: TRASTUZUMAB
     Dosage: 1260 MG, ONCE EVERY 3 WK, DURATION : 20 DAYS
     Route: 042
     Dates: start: 20160907, end: 20160926
  62. TRASTUZUMAB [Suspect]
     Active Substance: TRASTUZUMAB
     Dosage: 1355 MG, ONCE EVERY 3 WK, DURATION : 22 DAYS
     Route: 042
     Dates: start: 20170428, end: 20170519
  63. TRASTUZUMAB [Suspect]
     Active Substance: TRASTUZUMAB
     Dosage: 441 MG, DURATION : 2 DAYS
     Route: 042
     Dates: start: 20160202, end: 20160203
  64. ADO-TRASTUZUMAB EMTANSINE [Suspect]
     Active Substance: ADO-TRASTUZUMAB EMTANSINE
     Indication: HER2 positive breast cancer
     Dosage: 280 MG, ONCE EVERY 3 WK, THERAPY END DATE : NASK
     Route: 042
     Dates: start: 20180131
  65. ADO-TRASTUZUMAB EMTANSINE [Suspect]
     Active Substance: ADO-TRASTUZUMAB EMTANSINE
     Dosage: 441 MG, ONCE EVERY 3 WK, DURATION : 2 DAYS
     Route: 042
     Dates: start: 20160202, end: 20160203
  66. ADO-TRASTUZUMAB EMTANSINE [Suspect]
     Active Substance: ADO-TRASTUZUMAB EMTANSINE
     Dosage: 280 MG, ONCE EVERY 3 WK, DURATION : 1DAYS
     Route: 042
     Dates: start: 20160609, end: 20160609
  67. ADO-TRASTUZUMAB EMTANSINE [Suspect]
     Active Substance: ADO-TRASTUZUMAB EMTANSINE
     Dosage: 420 MG, ONCE EVERY 3 WK, DURATION : 20 DAYS
     Route: 042
     Dates: start: 20160907, end: 20160926
  68. ADO-TRASTUZUMAB EMTANSINE [Suspect]
     Active Substance: ADO-TRASTUZUMAB EMTANSINE
     Dosage: 280 MG, ONCE EVERY 3 WK, DURATION : 1 DAYS
     Route: 042
     Dates: start: 20180131, end: 20180131
  69. ADO-TRASTUZUMAB EMTANSINE [Suspect]
     Active Substance: ADO-TRASTUZUMAB EMTANSINE
     Dosage: 430 MG, ONCE EVERY 3 WK, DURATION : 258 DAYS
     Route: 042
     Dates: start: 20170724, end: 20180407
  70. CALCIUM CARBONATE\CHOLECALCIFEROL [Concomitant]
     Active Substance: CALCIUM CARBONATE\CHOLECALCIFEROL
     Indication: Product used for unknown indication
     Dosage: TWO TIMES A DAY
     Route: 048
     Dates: start: 20170621
  71. AMOXICILLIN [Concomitant]
     Active Substance: AMOXICILLIN
     Indication: Product used for unknown indication
     Dosage: DAILY
     Route: 048
     Dates: start: 201712, end: 201712
  72. CHLORPHENIRAMINE MALEATE [Concomitant]
     Active Substance: CHLORPHENIRAMINE MALEATE
     Indication: Product used for unknown indication
     Dosage: 10 MG, DURATION : 300 DAYS
     Route: 042
     Dates: start: 20160928, end: 20170724
  73. CHLORPHENIRAMINE MALEATE [Concomitant]
     Active Substance: CHLORPHENIRAMINE MALEATE
     Dosage: 10 MG, DURATION : 1 DAYS
     Route: 042
     Dates: start: 20160907, end: 20160907
  74. CIPROFLOXACIN [Concomitant]
     Active Substance: CIPROFLOXACIN
     Indication: Product used for unknown indication
     Dosage: DURATION : 1DAYS
     Route: 065
     Dates: start: 20161009, end: 20161009
  75. CIPROFLOXACIN HYDROCHLORIDE [Concomitant]
     Active Substance: CIPROFLOXACIN HYDROCHLORIDE
     Indication: Product used for unknown indication
     Dosage: 15 MILLIGRAM DAILY; 15 MG, FREQUENCY : 1, FREQUENCY TIME : 1 DAYS
  76. CLARITHROMYCIN LACTOBIONATE [Concomitant]
     Active Substance: CLARITHROMYCIN LACTOBIONATE
     Indication: Product used for unknown indication
     Dosage: 500 MG, DURATION : 16 DAYS
     Route: 048
     Dates: start: 20180214, end: 20180301
  77. ENOXAPARIN SODIUM [Concomitant]
     Active Substance: ENOXAPARIN SODIUM
     Indication: Product used for unknown indication
     Dosage: 110 MILLIGRAM DAILY; 110 MG, DURATION : 21 DAYS,  UNIT DOSE : 110 MG, FREQUENCY ; 1 , FREQUENCY TIME
     Route: 065
     Dates: start: 20160825, end: 20160914
  78. ENOXAPARIN SODIUM [Concomitant]
     Active Substance: ENOXAPARIN SODIUM
     Dosage: 40 MILLIGRAM DAILY; 40 MG, DURATION : 1 DAYS, UNIT DOSE : 40 MG, FREQUENCY ; 1 , FREQUENCY TIME : 1
     Route: 065
     Dates: start: 20160723, end: 20160723
  79. AMOXICILLIN\CLAVULANATE POTASSIUM [Concomitant]
     Active Substance: AMOXICILLIN\CLAVULANATE POTASSIUM
     Indication: Product used for unknown indication
     Dosage: 1875 MILLIGRAM DAILY; 625 MG, DURATION : 15 DAYS, UNIT DOSE : 625 MG, FREQUENCY ; 1 , FREQUENCY TIME
     Route: 065
     Dates: start: 20180215, end: 20180301
  80. AMOXICILLIN\CLAVULANATE POTASSIUM [Concomitant]
     Active Substance: AMOXICILLIN\CLAVULANATE POTASSIUM
     Dosage: 2 GRAM DAILY; 2 G, DURATION : 16 DAYS, UNIT DOSE : 2 GRAM, FREQUENCY ; 1 , FREQUENCY TIME : 1 DAYS,
     Route: 065
     Dates: start: 20180214, end: 20180301
  81. AMOXICILLIN\CLAVULANATE POTASSIUM [Concomitant]
     Active Substance: AMOXICILLIN\CLAVULANATE POTASSIUM
     Dosage: 2 GRAM DAILY; 1 G,  UNIT DOSE : 1 GRAM, FREQUENCY ; 1 , FREQUENCY TIME : 12 HOURS, THERAPY DURATION
     Route: 065
     Dates: start: 20180214, end: 20180214
  82. AMOXICILLIN\CLAVULANATE POTASSIUM [Concomitant]
     Active Substance: AMOXICILLIN\CLAVULANATE POTASSIUM
     Dosage: 10 MILLIGRAM DAILY; 5 MG,  UNIT DOSE : 5 MG, FREQUENCY ; 1 , FREQUENCY TIME : 12 HOURS
     Route: 065
     Dates: start: 20180214
  83. AMOXICILLIN\CLAVULANATE POTASSIUM [Concomitant]
     Active Substance: AMOXICILLIN\CLAVULANATE POTASSIUM
     Dosage: 1875 MILLIGRAM DAILY; 1875 MG,  UNIT DOSE : 1875 MG, FREQUENCY ; 1 , FREQUENCY TIME : 1 DAYS, THERAP
     Route: 065
     Dates: start: 20180214, end: 20180214
  84. AMOXICILLIN\CLAVULANATE POTASSIUM [Concomitant]
     Active Substance: AMOXICILLIN\CLAVULANATE POTASSIUM
     Dosage: 1875 MILLIGRAM DAILY; 625 MG,  UNIT DOSE : 625 MG, FREQUENCY ; 1 , FREQUENCY TIME : 8 HOURS, THERAPY
     Route: 065
     Dates: start: 20180301
  85. COTRIMOXAZOLE [Concomitant]
     Active Substance: SULFAMETHOXAZOLE\TRIMETHOPRIM
     Indication: Product used for unknown indication
     Dosage: 483 MILLIGRAM DAILY; 483 MG,  UNIT DOSE : 483 MG, FREQUENCY ; 1 , FREQUENCY TIME : 1 DAYS,  THERAPY
     Route: 048
     Dates: start: 20180131, end: 20180131
  86. CODEINE [Concomitant]
     Active Substance: CODEINE
     Indication: Product used for unknown indication
     Dosage: UNIT DOSE:10 MG, DURATION : 1 DAYS
     Route: 048
     Dates: start: 20170619, end: 20170619
  87. CHLOROFORM\CODEINE PHOSPHATE\DRIMIA MARITIMA BULB [Concomitant]
     Active Substance: CHLOROFORM\CODEINE PHOSPHATE\DRIMIA MARITIMA BULB
     Indication: Product used for unknown indication
     Dosage: UNIT DOSE: 10 ML, DURATION : 1 DAYS
     Route: 048
     Dates: start: 20170619, end: 20170619
  88. CYCLIZINE [Concomitant]
     Active Substance: CYCLIZINE
     Indication: Product used for unknown indication
     Dosage: 150 MILLIGRAM DAILY; 50 MG,  UNIT DOSE : 50 MG, FREQUENCY ; 1 , FREQUENCY TIME : 8 HOURS, THERAPY DU
     Route: 065
     Dates: start: 20170902
  89. DEXAMETHASONE [Concomitant]
     Active Substance: DEXAMETHASONE
     Indication: Product used for unknown indication
     Dosage: 1 DOSAGE FORMS DAILY; 1 DF, DURATION : 1 MONTHS,  UNIT DOSE : 1 DOSAGE FORMS, FREQUENCY ; 1 , FREQUE
     Route: 065
     Dates: start: 20190805, end: 201909
  90. DEXAMETHASONE [Concomitant]
     Active Substance: DEXAMETHASONE
     Dosage: 8 MILLIGRAM DAILY; 4 MG, DURATION : 79 DAYS,  UNIT DOSE : 4 MG, FREQUENCY ; 1 , FREQUENCY TIME : 12
     Route: 065
     Dates: start: 20170616, end: 20170902
  91. DEXAMETHASONE [Concomitant]
     Active Substance: DEXAMETHASONE
     Dosage: 4 MILLIGRAM DAILY; 4 MG,  UNIT DOSE : 4 MG, FREQUENCY ; 1 , FREQUENCY TIME : 1 DAYS,
     Route: 065
     Dates: start: 20180110
  92. DEXAMETHASONE [Concomitant]
     Active Substance: DEXAMETHASONE
     Dosage: 8 MILLIGRAM DAILY;  UNIT DOSE : 8 MG, FREQUENCY ; 1 , FREQUENCY TIME : 1 DAYS, THERAPY DURATION : 3
     Route: 065
     Dates: start: 20160803, end: 20160805
  93. DEXAMETHASONE [Concomitant]
     Active Substance: DEXAMETHASONE
     Dosage: 8 MILLIGRAM DAILY;  UNIT DOSE : 4 MG, FREQUENCY ; 1 , FREQUENCY TIME : 12 HOURS, THERAPY DURATION :
     Route: 065
     Dates: start: 20160722, end: 20160723
  94. DEXAMETHASONE [Concomitant]
     Active Substance: DEXAMETHASONE
     Dosage: 1 DOSAGE FORMS DAILY;  UNIT DOSE : 1 DOSAGE FORMS, FREQUENCY ; 1 , FREQUENCY TIME : 1 DAYS, THERAPY
     Route: 065
     Dates: start: 20160805, end: 201909
  95. DEXAMETHASONE [Concomitant]
     Active Substance: DEXAMETHASONE
     Dosage: 8 MG, DURATION : 2 DAYS,  UNIT DOSE : 8 MG
     Route: 065
     Dates: start: 20160610, end: 20160611
  96. DEXAMETHASONE [Concomitant]
     Active Substance: DEXAMETHASONE
     Dosage: 2 MILLIGRAM DAILY; 2 MG,  UNIT DOSE : 2 MG, FREQUENCY ; 1 , FREQUENCY TIME : 1 DAYS
     Route: 065
     Dates: start: 20200111
  97. DEXAMETHASONE [Concomitant]
     Active Substance: DEXAMETHASONE
     Dosage: 8 MG, DURATION : 1 DAYS, UNIT DOSE : 8 MG,
     Route: 065
     Dates: start: 20170616, end: 20170616
  98. DEXAMETHASONE [Concomitant]
     Active Substance: DEXAMETHASONE
     Dosage: 1 DOSAGE FORMS DAILY;  UNIT DOSE : 1 DOSAGE FORMS, FREQUENCY ; 1 , FREQUENCY TIME : 1 DAYS, THERAPY
     Dates: start: 20160805, end: 201609
  99. DEXAMETHASONE [Concomitant]
     Active Substance: DEXAMETHASONE
     Dosage: 80 MILLIGRAM DAILY;  UNIT DOSE : 40 MG, FREQUENCY ; 1 , FREQUENCY TIME : 12 HOURS, THERAPY DURATION
     Route: 065
     Dates: start: 20160722, end: 20160723
  100. DEXAMETHASONE [Concomitant]
     Active Substance: DEXAMETHASONE
     Dosage: 2 MILLIGRAM DAILY;  UNIT DOSE : 2 MG, FREQUENCY ; 1 , FREQUENCY TIME : 1 DAYS, THERAPY DURATION : 13
     Dates: start: 20170902, end: 20180110
  101. DICLOFENAC POTASSIUM [Concomitant]
     Active Substance: DICLOFENAC POTASSIUM
     Indication: Product used for unknown indication
     Dosage: DAILY, DURATION :2 DAYS
     Route: 065
     Dates: start: 20160722, end: 20160723
  102. BENZYDAMINE [Concomitant]
     Active Substance: BENZYDAMINE
     Indication: Product used for unknown indication
     Dosage: 110 MILLIGRAM DAILY;  UNIT DOSE : 110 MG, FREQUENCY ; 1 , FREQUENCY TIME : 1 DAYS, THERAPY DURATION
     Route: 065
     Dates: start: 20160825, end: 20160914
  103. BENZYDAMINE [Concomitant]
     Active Substance: BENZYDAMINE
     Dosage: 40 MILLIGRAM DAILY;  UNIT DOSE : 40 MG, FREQUENCY ; 1 , FREQUENCY TIME : 1 DAYS, THERAPY DURATION :
     Route: 065
     Dates: start: 20160723, end: 20160723
  104. BENZYDAMINE [Concomitant]
     Active Substance: BENZYDAMINE
     Dosage: DURATION :2 DAYS
     Route: 065
     Dates: start: 20160722, end: 20160723
  105. DOCUSATE [Concomitant]
     Active Substance: DOCUSATE
     Indication: Product used for unknown indication
     Dosage: 20 MILLIGRAM DAILY;  UNIT DOSE : 20 MG, FREQUENCY ; 1 , FREQUENCY TIME : 1 DAYS, THERAPY DURATION :
     Route: 065
     Dates: start: 20160722, end: 20160724
  106. ENOXAPARIN [Concomitant]
     Active Substance: ENOXAPARIN
     Indication: Product used for unknown indication
     Dosage: 40 MILLIGRAM DAILY;  UNIT DOSE : 40 MG, FREQUENCY ; 1 , FREQUENCY TIME : 1 DAYS, THERAPY DURATION :
     Route: 058
     Dates: start: 20160825, end: 20160914
  107. ENOXAPARIN [Concomitant]
     Active Substance: ENOXAPARIN
     Dosage: 40 MILLIGRAM DAILY;  UNIT DOSE : 40 MG, FREQUENCY ; 1 , FREQUENCY TIME : 1 DAYS, THERAPY DURATION :
     Route: 058
     Dates: start: 20180214, end: 20180218
  108. ENOXAPARIN [Concomitant]
     Active Substance: ENOXAPARIN
     Dosage: 40 MILLIGRAM DAILY;  UNIT DOSE : 40 MG, FREQUENCY ; 1 , FREQUENCY TIME : 1 DAYS, THERAPY DURATION :
     Route: 058
     Dates: start: 20180212, end: 20180212
  109. ENOXAPARIN [Concomitant]
     Active Substance: ENOXAPARIN
     Dosage: 1200 MILLIGRAM DAILY;  UNIT DOSE : 1200 MG, FREQUENCY ; 1 , FREQUENCY TIME : 1 DAYS, THERAPY DURATIO
     Route: 058
     Dates: start: 20180212, end: 20180212
  110. ENOXAPARIN [Concomitant]
     Active Substance: ENOXAPARIN
     Dosage: 120 MILLIGRAM DAILY;  UNIT DOSE : 120 MG, FREQUENCY ; 1 , FREQUENCY TIME : 1 DAYS,
     Route: 058
  111. ENOXAPARIN [Concomitant]
     Active Substance: ENOXAPARIN
     Dosage: 120 MILLIGRAM DAILY;  UNIT DOSE : 120 MG, FREQUENCY ; 1 , FREQUENCY TIME : 1 DAYS, THERAPY DURATION
     Route: 058
     Dates: start: 20180214, end: 20180218
  112. ENOXAPARIN [Concomitant]
     Active Substance: ENOXAPARIN
     Dosage: 40 MILLIGRAM DAILY;  UNIT DOSE : 40 MG, FREQUENCY ; 1 , FREQUENCY TIME : 1 DAYS, THERAPY DURATION :
     Route: 058
     Dates: start: 20180214, end: 20180218
  113. ENOXAPARIN [Concomitant]
     Active Substance: ENOXAPARIN
     Dosage: 40 MILLIGRAM DAILY;  UNIT DOSE : 40 MG, FREQUENCY ; 1 , FREQUENCY TIME : 1 DAYS, THERAPY DURATION :
     Route: 058
     Dates: start: 20180105, end: 20180117
  114. ENOXAPARIN [Concomitant]
     Active Substance: ENOXAPARIN
     Dosage: 40 MILLIGRAM DAILY;  UNIT DOSE : 40 MG, FREQUENCY ; 1 , FREQUENCY TIME : 1 DAYS, THERAPY DURATION :
     Route: 058
     Dates: start: 20170616, end: 20170623
  115. ENOXAPARIN [Concomitant]
     Active Substance: ENOXAPARIN
     Dosage: DURATION : 576 DAYS
     Route: 058
     Dates: start: 20160723, end: 20180218
  116. ENOXAPARIN [Concomitant]
     Active Substance: ENOXAPARIN
     Dosage: 40 MILLIGRAM DAILY;  UNIT DOSE : 40 MG, FREQUENCY ; 1 , FREQUENCY TIME : 1 DAYS, THERAPY DURATION :
     Route: 058
     Dates: start: 20160817, end: 20160914
  117. ENOXAPARIN [Concomitant]
     Active Substance: ENOXAPARIN
     Dosage: DURATION : 21 DAYS
     Route: 058
     Dates: start: 20160825, end: 20160914
  118. FILGRASTIM [Concomitant]
     Active Substance: FILGRASTIM
     Indication: Product used for unknown indication
     Dosage: 300 UG, DURATION : 105 DAYS
     Route: 065
     Dates: start: 20160731, end: 20161112
  119. GENTAMICIN [Concomitant]
     Active Substance: GENTAMICIN
     Indication: Product used for unknown indication
     Dosage: 375 MILLIGRAM DAILY;  UNIT DOSE : 375 MG, FREQUENCY ; 1 , FREQUENCY TIME : 1 DAYS, THERAPY DURATION
     Route: 065
     Dates: start: 20161009, end: 20161009
  120. GENTAMICIN [Concomitant]
     Active Substance: GENTAMICIN
     Dosage: 800 MILLIGRAM DAILY;  UNIT DOSE : 400 MG, FREQUENCY ; 1 , FREQUENCY TIME : 12 HOURS, THERAPY DURATIO
     Route: 065
     Dates: start: 20180212, end: 20180212
  121. HYDROCORTISONE [Concomitant]
     Active Substance: HYDROCORTISONE
     Indication: Product used for unknown indication
     Dosage: 100 MG, DURATION : 1 DAYS
     Route: 042
     Dates: start: 20160907, end: 20160907
  122. HYDROCORTISONE [Concomitant]
     Active Substance: HYDROCORTISONE
     Dosage: UNIT DOSE:100 MG
     Route: 042
     Dates: start: 20160928
  123. HYDROCORTISONE [Concomitant]
     Active Substance: HYDROCORTISONE
     Dosage: UNIT DOSE: 500 MG, DURATION : 1 DAYS
     Route: 042
     Dates: start: 20170616, end: 20170616
  124. HYDROCORTISONE [Concomitant]
     Active Substance: HYDROCORTISONE
     Dosage: UNIT DOSE: 500 MG
     Route: 042
     Dates: start: 20170617
  125. LANSOPRAZOLE [Concomitant]
     Active Substance: LANSOPRAZOLE
     Indication: Product used for unknown indication
     Dosage: UNIT DOSE:30 MG
     Route: 065
     Dates: start: 20160809
  126. LANSOPRAZOLE [Concomitant]
     Active Substance: LANSOPRAZOLE
     Dosage: 30 MILLIGRAM DAILY;  UNIT DOSE : 30 MG, FREQUENCY ; 1 , FREQUENCY TIME : 1 DAYS,
     Route: 065
     Dates: start: 20161010
  127. LANSOPRAZOLE [Concomitant]
     Active Substance: LANSOPRAZOLE
     Dosage: 30 MILLIGRAM DAILY;  UNIT DOSE : 30 MG, FREQUENCY ; 1 , FREQUENCY TIME : 1 DAYS, THERAPY DURATION :
     Route: 065
     Dates: start: 20160722, end: 20160724
  128. LEVETIRACETAM [Concomitant]
     Active Substance: LEVETIRACETAM
     Indication: Product used for unknown indication
     Dosage: 1000 MILLIGRAM DAILY;  UNIT DOSE : 500 MG, FREQUENCY ; 1 , FREQUENCY TIME : 12 HOURS
     Route: 042
     Dates: start: 20170617
  129. LEVETIRACETAM [Concomitant]
     Active Substance: LEVETIRACETAM
     Dosage: 1000 MILLIGRAM DAILY;  UNIT DOSE : 500 MG, FREQUENCY ; 1 , FREQUENCY TIME : 12 HOURS, THERAPY DURATI
     Route: 042
     Dates: start: 20170617, end: 20170617
  130. LEVETIRACETAM [Concomitant]
     Active Substance: LEVETIRACETAM
     Dosage: UNIT DOSE :1 G, DURATION : 9 DAYS
     Route: 042
     Dates: start: 20161009, end: 20161017
  131. LEVETIRACETAM [Concomitant]
     Active Substance: LEVETIRACETAM
     Dosage: DURATION : 18 DAYS
     Route: 042
     Dates: start: 20170908, end: 20170925
  132. LEVETIRACETAM [Concomitant]
     Active Substance: LEVETIRACETAM
     Dosage: UNIT DOSE :1 G, DURATION : 1 DAYS
     Route: 042
     Dates: start: 20170616, end: 20170616
  133. LEVETIRACETAM [Concomitant]
     Active Substance: LEVETIRACETAM
     Dosage: 1 GRAM DAILY;  UNIT DOSE : 1 G, FREQUENCY ; 1 , FREQUENCY TIME : 1 DAYS,
     Route: 042
     Dates: start: 20170617
  134. LEVOFLOXACIN [Concomitant]
     Active Substance: LEVOFLOXACIN
     Indication: Product used for unknown indication
     Dosage: DURATION :9 DAYS
     Route: 065
     Dates: start: 20161009, end: 20161017
  135. LEVOMEPROMAZINE [Concomitant]
     Active Substance: LEVOMEPROMAZINE
     Indication: Product used for unknown indication
     Dosage: UNIT DOSE: 6 MG, DURATION : 1 DAYS
     Route: 058
     Dates: start: 20170617, end: 20170617
  136. LEVOMEPROMAZINE [Concomitant]
     Active Substance: LEVOMEPROMAZINE
     Dosage: UNIT DOSE: 6 MG, DURATION : 1 DAYS
     Route: 058
     Dates: start: 20170617, end: 20170617
  137. LEVOMEPROMAZINE [Concomitant]
     Active Substance: LEVOMEPROMAZINE
     Dosage: 6 MILLIGRAM DAILY;  UNIT DOSE : 6 MG, FREQUENCY ; 1 , FREQUENCY TIME : 1 DAYS, THERAPY DURATION : 18
     Route: 058
     Dates: start: 20170908, end: 20170925
  138. LEVOMEPROMAZINE [Concomitant]
     Active Substance: LEVOMEPROMAZINE
     Dosage: DURATION : 18DAYS
     Route: 058
     Dates: start: 20170908, end: 20170925
  139. MEROPENEM [Concomitant]
     Active Substance: MEROPENEM
     Indication: Product used for unknown indication
     Dosage: UNIT DOSE: 1 G, DURATION :  9 DAYS
     Route: 042
     Dates: start: 20160809, end: 20160817
  140. METOCLOPRAMIDE [Concomitant]
     Active Substance: METOCLOPRAMIDE
     Indication: Product used for unknown indication
     Dosage: UNIT DOSE: 10 MG, DURATION : 1 DAYS
     Route: 048
     Dates: start: 20180106, end: 20180106
  141. METOCLOPRAMIDE [Concomitant]
     Active Substance: METOCLOPRAMIDE
     Dosage: UNIT DOSE: 10 MG, DURATION : 155 DAYS
     Route: 048
     Dates: start: 20160610, end: 20161111
  142. METOCLOPRAMIDE [Concomitant]
     Active Substance: METOCLOPRAMIDE
     Dosage: UNIT DOSE: 10 MG,
     Route: 048
     Dates: start: 20180131
  143. ONDANSETRON [Concomitant]
     Active Substance: ONDANSETRON
     Indication: Product used for unknown indication
     Dosage: 24 MILLIGRAM DAILY;  UNIT DOSE : 8 MG, FREQUENCY ; 1 , FREQUENCY TIME : 8 HOURS, THERAPY DURATION :
     Route: 065
     Dates: start: 20170616, end: 20170626
  144. ONDANSETRON [Concomitant]
     Active Substance: ONDANSETRON
     Dosage: 24 MILLIGRAM DAILY; UNIT DOSE : 8 MG, FREQUENCY ; 1 , FREQUENCY TIME : 8 HOURS,
     Route: 065
     Dates: start: 20170902
  145. MORPHINE SULFATE [Concomitant]
     Active Substance: MORPHINE SULFATE
     Indication: Product used for unknown indication
     Dosage: 30 MILLIGRAM DAILY; UNIT DOSE : 15 MG, FREQUENCY ; 1 , FREQUENCY TIME : 12  HOURS, THERAPY DURATION
     Route: 065
     Dates: start: 20180213, end: 20180217
  146. MORPHINE SULFATE [Concomitant]
     Active Substance: MORPHINE SULFATE
     Dosage: UNIT DOSE : 3 MG
     Route: 048
     Dates: start: 20160828
  147. OSELTAMIVIR [Concomitant]
     Active Substance: OSELTAMIVIR
     Indication: Product used for unknown indication
     Dosage: 30 MILLIGRAM DAILY; UNIT DOSE : 15 MG, FREQUENCY ; 1 , FREQUENCY TIME : 12 HOURS, THERAPY DURATION :
     Route: 065
     Dates: start: 20180213, end: 20180217
  148. ACETAMINOPHEN [Concomitant]
     Active Substance: ACETAMINOPHEN
     Indication: Product used for unknown indication
     Dosage: UNIT DOSE: 1 MG, DURATION : 2 DAYS
     Route: 065
     Dates: start: 20160723, end: 20160724
  149. ACETAMINOPHEN [Concomitant]
     Active Substance: ACETAMINOPHEN
     Dosage: UNIT DOSE: 1 G,
     Route: 065
     Dates: start: 20170903
  150. ACETAMINOPHEN [Concomitant]
     Active Substance: ACETAMINOPHEN
     Dosage: 1 GRAM DAILY;  UNIT DOSE : 1 G, FREQUENCY ; 1 , FREQUENCY TIME : 1 DAYS, THERAPY DURATION : 3 DAYS
     Route: 065
     Dates: start: 20160722, end: 20160724
  151. ACETAMINOPHEN [Concomitant]
     Active Substance: ACETAMINOPHEN
     Dosage: UNIT DOSE : 5 G
     Route: 065
     Dates: start: 20160803
  152. PIPERACILLIN SODIUM [Concomitant]
     Active Substance: PIPERACILLIN SODIUM
     Indication: Product used for unknown indication
     Dosage: 42 MILLIGRAM DAILY; UNIT DOSE : 14 MG, FREQUENCY ; 1 , FREQUENCY TIME : 8 HOURS, THERAPY DURATION :
     Route: 065
     Dates: start: 20180212, end: 20180214
  153. PIPERACILLIN SODIUM [Concomitant]
     Active Substance: PIPERACILLIN SODIUM
     Dosage: 15 MILLIGRAM DAILY; UNIT DOSE : 5 MG, FREQUENCY ; 1 , FREQUENCY TIME : 8 HOURS, THERAPY DURATION : 3
     Route: 065
     Dates: start: 20180212, end: 20180214
  154. RAMIPRIL [Concomitant]
     Active Substance: RAMIPRIL
     Indication: Product used for unknown indication
     Route: 065
     Dates: start: 20160722
  155. RAMIPRIL [Concomitant]
     Active Substance: RAMIPRIL
     Dosage: UNIT DOSE : 2 MG
     Route: 065
  156. RANITIDINE [Concomitant]
     Active Substance: RANITIDINE
     Indication: Product used for unknown indication
     Dosage: UNIT DOSE: 50 MG, DURATION : 2 DAYS
     Route: 048
     Dates: start: 20170717, end: 20170718
  157. ALBUTEROL [Concomitant]
     Active Substance: ALBUTEROL
     Indication: Product used for unknown indication
     Dosage: UNIT DOSE: 3 MG, DURATION : 3 DAYS
     Route: 055
     Dates: start: 20170616, end: 20170618
  158. ALBUTEROL [Concomitant]
     Active Substance: ALBUTEROL
     Dosage: UNIT DOSE: 3 MG, DURATION : 3 DAYS
     Route: 055
     Dates: start: 20170616, end: 20170618
  159. ALBUTEROL [Concomitant]
     Active Substance: ALBUTEROL
     Dosage: DURATION : 18 DAYS
     Route: 055
     Dates: start: 20160822, end: 20160908
  160. SODIUM CHLORIDE [Concomitant]
     Active Substance: SODIUM CHLORIDE
     Indication: Product used for unknown indication
     Dosage: UNIT DOSE: 59 MG, DURATION : 3 DAYS
     Route: 055
     Dates: start: 20180212, end: 20180214
  161. SODIUM CHLORIDE [Concomitant]
     Active Substance: SODIUM CHLORIDE
     Dosage: UNIT DOSE: 59 MG, DURATION : 1 DAYS
     Route: 055
     Dates: start: 20180105, end: 20180105
  162. SODIUM CHLORIDE [Concomitant]
     Active Substance: SODIUM CHLORIDE
     Dosage: UNIT DOSE:5 ML, FREQUENCY :1, FREQUENCY TIME : 4 WEEKS, DURATION : 8 DAYS
     Route: 055
     Dates: start: 20170616, end: 20170623
  163. SODIUM CHLORIDE [Concomitant]
     Active Substance: SODIUM CHLORIDE
     Dosage: UNIT DOSE: 5 MG, FREQUENCY :1, FREQUENCY TIME : 4 WEEKS, DURATION : 8 DAYS
     Route: 048
     Dates: start: 20170616, end: 20170623
  164. SODIUM CHLORIDE [Concomitant]
     Active Substance: SODIUM CHLORIDE
     Dosage: UNIT DOSE:59 MG, DURATION : 1 DAYS
     Route: 048
     Dates: start: 20180105, end: 20180105
  165. SODIUM CHLORIDE [Concomitant]
     Active Substance: SODIUM CHLORIDE
     Dosage: UNIT DOSE: 59 MG, DURATION : 3 DAYS
     Route: 048
     Dates: start: 20180212, end: 20180214
  166. SENNA [Concomitant]
     Active Substance: SENNA LEAF\SENNOSIDES\SENNOSIDES A AND B
     Indication: HER2 positive breast cancer
     Dosage: 15 MILLIGRAM DAILY;  UNIT DOSE : 15 MG, FREQUENCY ; 1 , FREQUENCY TIME : 1 DAYS, THERAPY DURATION :
     Route: 065
     Dates: start: 20160722, end: 20161011
  167. SENNA [Concomitant]
     Active Substance: SENNA LEAF\SENNOSIDES\SENNOSIDES A AND B
     Dosage: 15 MILLIGRAM DAILY;  UNIT DOSE : 15 MG, FREQUENCY ; 1 , FREQUENCY TIME : 1 DAYS,
     Route: 065
     Dates: start: 20160722
  168. SENNA LEAF [Concomitant]
     Active Substance: SENNA LEAF
     Indication: Product used for unknown indication
     Route: 065
     Dates: start: 20160722
  169. SULFAMETHOXAZOLE\TRIMETHOPRIM [Concomitant]
     Active Substance: SULFAMETHOXAZOLE\TRIMETHOPRIM
     Indication: Product used for unknown indication
     Dosage: UNIT DOSE: 2112 MG, DURATION : 6 DAYS
     Route: 042
     Dates: start: 20160811, end: 20160816
  170. PIPERACILLIN SODIUM\TAZOBACTAM SODIUM [Concomitant]
     Active Substance: PIPERACILLIN SODIUM\TAZOBACTAM SODIUM
     Indication: Product used for unknown indication
     Dosage: 42 MILLIGRAM DAILY; UNIT DOSE : 14 MG, FREQUENCY ; 1 , FREQUENCY TIME : 8 HOURS, THERAPY DURATION :
     Route: 065
     Dates: start: 20180212, end: 20180214
  171. PIPERACILLIN SODIUM\TAZOBACTAM SODIUM [Concomitant]
     Active Substance: PIPERACILLIN SODIUM\TAZOBACTAM SODIUM
     Dosage: 15 MILLIGRAM DAILY; UNIT DOSE : 5 MG, FREQUENCY ; 1 , FREQUENCY TIME : 8 HOURS, THERAPY DURATION : 3
     Route: 065
     Dates: start: 20180212, end: 20180214
  172. TRIMETHOPRIM [Concomitant]
     Active Substance: TRIMETHOPRIM
     Indication: Product used for unknown indication
     Dosage: 150 MILLIGRAM DAILY; UNIT DOSE : 50 MG, FREQUENCY ; 1 , FREQUENCY TIME : 8 HOURS,
     Route: 065
     Dates: start: 20170902
  173. TRIMETHOPRIM [Concomitant]
     Active Substance: TRIMETHOPRIM
     Dosage: 6336 MILLIGRAM DAILY; UNIT DOSE : 2112 MG, FREQUENCY ; 1 , FREQUENCY TIME : 8 HOURS, THERAPY DURATIO
     Route: 065
     Dates: start: 20160811, end: 20160816
  174. TRIMETHOPRIM [Concomitant]
     Active Substance: TRIMETHOPRIM
     Dosage: 483 MILLIGRAM DAILY;  UNIT DOSE : 483  MG, FREQUENCY ; 1 , FREQUENCY TIME : 1 DAYS, THERAPY DURATION
     Route: 065
     Dates: start: 20180131, end: 20180131
  175. VANCOMYCIN [Concomitant]
     Active Substance: VANCOMYCIN
     Indication: Product used for unknown indication
     Dosage: DURATION : 1 DAYS
     Route: 065
     Dates: start: 20181009, end: 20181009
  176. ZOPICLONE [Concomitant]
     Active Substance: ZOPICLONE
     Indication: Product used for unknown indication
     Dosage: UNIT DOSE: 4 MG, DURATION : 2 DAYS
     Route: 048
     Dates: start: 20170618, end: 20170619
  177. ZOPICLONE [Concomitant]
     Active Substance: ZOPICLONE
     Dosage: UNIT DOSE: 4 MG, DURATION : 2 DAYS
     Route: 048
     Dates: start: 20170618, end: 20170619

REACTIONS (15)
  - Disease progression [Fatal]
  - Dyspnoea [Not Recovered/Not Resolved]
  - Deep vein thrombosis [Not Recovered/Not Resolved]
  - Vomiting [Not Recovered/Not Resolved]
  - Seizure [Recovering/Resolving]
  - Nausea [Recovered/Resolved]
  - Back pain [Recovered/Resolved]
  - Lower respiratory tract infection [Recovered/Resolved]
  - Pneumonia [Recovered/Resolved]
  - Diarrhoea [Recovered/Resolved]
  - Hyponatraemia [Recovered/Resolved]
  - Chest pain [Recovered/Resolved]
  - Ejection fraction decreased [Unknown]
  - Pain in jaw [Recovered/Resolved]
  - Excessive eye blinking [Recovered/Resolved]

NARRATIVE: CASE EVENT DATE: 20160722
